FAERS Safety Report 6172336-8 (Version None)
Quarter: 2009Q2

REPORT INFORMATION
  Report Type: 
  Country: None (occurrence: None)
  Receive Date: 20090429
  Receipt Date: 20090417
  Transmission Date: 20091009
  Serious: Yes (Other)
  Sender: FDA-Public Use
  Company Number: AU-PFIZER INC-2009200062

PATIENT

DRUGS (3)
  1. CABERGOLINE [Suspect]
     Indication: RESTLESS LEGS SYNDROME
  2. GABAPENTIN [Suspect]
     Indication: RESTLESS LEGS SYNDROME
  3. ROPINIROLE [Suspect]
     Indication: RESTLESS LEGS SYNDROME

REACTIONS (3)
  - IMPULSE-CONTROL DISORDER [None]
  - MOVEMENT DISORDER [None]
  - STEREOTYPY [None]
